FAERS Safety Report 9743278 (Version 1)
Quarter: 2013Q4

REPORT INFORMATION
  Report Type: Spontaneous
  Country: US (occurrence: US)
  Receive Date: 20131210
  Receipt Date: 20131210
  Transmission Date: 20140711
  Serious: No
  Sender: FDA-Public Use
  Company Number: US-GILEAD-2009-0025453

PATIENT
  Sex: Female
  Weight: 84.1 kg

DRUGS (13)
  1. LETAIRIS [Suspect]
     Indication: PULMONARY ARTERIAL HYPERTENSION
     Route: 048
     Dates: start: 20091009, end: 20091023
  2. TYVASO [Concomitant]
  3. DEMADEX [Concomitant]
  4. SINGULAIR [Concomitant]
  5. CALAN [Concomitant]
  6. LOPRESSOR [Concomitant]
  7. REVATIO [Concomitant]
  8. PLAVIX [Concomitant]
  9. SYNTHROID [Concomitant]
  10. PRILOSEC [Concomitant]
  11. ACCUPRIL [Concomitant]
  12. IMDUR [Concomitant]
  13. ASA [Concomitant]

REACTIONS (4)
  - Hypersensitivity [Recovering/Resolving]
  - Swelling [Recovering/Resolving]
  - Constipation [Recovering/Resolving]
  - Dyspnoea [Recovering/Resolving]
